FAERS Safety Report 8012643-7 (Version None)
Quarter: 2011Q4

REPORT INFORMATION
  Report Type: 
  Country: None (occurrence: None)
  Receive Date: 20111229
  Receipt Date: 20111219
  Transmission Date: 20120403
  Serious: No
  Sender: FDA-Public Use
  Company Number: US-BAYER-2011-123453

PATIENT
  Age: 74 Year
  Sex: Female
  Weight: 58.05 kg

DRUGS (2)
  1. LIPITOR [Concomitant]
     Indication: BLOOD CHOLESTEROL ABNORMAL
     Dosage: UNK
  2. AVELOX [Suspect]
     Indication: URINARY TRACT INFECTION
     Dosage: UNK

REACTIONS (5)
  - ASTHENIA [None]
  - ECZEMA [None]
  - PRURITUS [None]
  - SKIN TIGHTNESS [None]
  - DRY SKIN [None]
